FAERS Safety Report 14785655 (Version 2)
Quarter: 2018Q2

REPORT INFORMATION
  Report Type: Spontaneous
  Country: BR (occurrence: BR)
  Receive Date: 20180420
  Receipt Date: 20180615
  Transmission Date: 20180711
  Serious: Yes (Hospitalization, Other)
  Sender: FDA-Public Use
  Company Number: BR-DSJP-DSU-2018-115356

PATIENT

DRUGS (2)
  1. OLMETEC HCT 20/12.5 [Suspect]
     Active Substance: HYDROCHLOROTHIAZIDE\OLMESARTAN MEDOXOMIL
     Indication: HYPERTENSION
     Dosage: 1 DF (20/12.5 MG), QD (IN THE MORNING)
     Route: 048
     Dates: end: 201805
  2. PHARMACY COMPOUNDING MEDICATION [Concomitant]
     Indication: RHEUMATOID ARTHRITIS
     Dosage: UNK
     Route: 065
     Dates: start: 2011

REACTIONS (1)
  - Gastrointestinal neoplasm [Recovered/Resolved]

NARRATIVE: CASE EVENT DATE: 2016
